FAERS Safety Report 5043945-4 (Version None)
Quarter: 2006Q2

REPORT INFORMATION
  Report Type: 
  Country: None (occurrence: None)
  Receive Date: 20060601
  Receipt Date: 20060419
  Transmission Date: 20061013
  Serious: No
  Sender: FDA-Public Use
  Company Number: 2006-BP-04411BP

PATIENT
  Sex: Male

DRUGS (3)
  1. SPIRIVA [Suspect]
     Indication: CHRONIC OBSTRUCTIVE PULMONARY DISEASE
     Dosage: 18 MCG (18 MCG, 1 IN 1 D), IH
     Route: 055
     Dates: start: 20050101
  2. NORVASC [Suspect]
     Dosage: PO
     Route: 048
     Dates: start: 20041201, end: 20060418
  3. LASIX [Suspect]
     Dosage: PO
     Route: 048

REACTIONS (2)
  - GENERALISED OEDEMA [None]
  - WEIGHT INCREASED [None]
